FAERS Safety Report 5746532-5 (Version None)
Quarter: 2008Q2

REPORT INFORMATION
  Report Type: 
  Country: None (occurrence: None)
  Receive Date: 20080522
  Receipt Date: 20070906
  Transmission Date: 20081010
  Serious: No
  Sender: FDA-Public Use
  Company Number: US-BRISTOL-MYERS SQUIBB COMPANY-13904743

PATIENT
  Sex: Female

DRUGS (3)
  1. CYCLOPHOSPHAMIDE [Suspect]
     Indication: BREAST CANCER
  2. TAXOTERE [Suspect]
     Indication: BREAST CANCER
  3. DOXORUBICIN HCL [Suspect]
     Indication: BREAST CANCER

REACTIONS (1)
  - RESTLESS LEGS SYNDROME [None]
